FAERS Safety Report 5173144-7 (Version None)
Quarter: 2006Q4

REPORT INFORMATION
  Report Type: 
  Country: None (occurrence: None)
  Receive Date: 20061207
  Receipt Date: 20061207
  Transmission Date: 20070319
  Serious: No
  Sender: FDA-Public Use
  Company Number: None

PATIENT
  Age: 44 Year
  Sex: Male
  Weight: 127.0072 kg

DRUGS (1)
  1. ZICAM NO DRIP LIQUID NASAL GEL OXYMETAZOLINE HYDROCHLORIDE MATRIXX [Suspect]
     Indication: NASAL CONGESTION
     Dosage: 1 SPRAY IN EACH NOSTRIL ONCE A DAY NASAL
     Route: 045
     Dates: start: 20061115, end: 20061117

REACTIONS (2)
  - AGEUSIA [None]
  - ANOSMIA [None]
